FAERS Safety Report 16202928 (Version 1)
Quarter: 2019Q2

REPORT INFORMATION
  Report Type: Spontaneous
  Country: US (occurrence: US)
  Receive Date: 20190416
  Receipt Date: 20190416
  Transmission Date: 20190711
  Serious: No
  Sender: FDA-Public Use
  Company Number: US-TRIS PHARMA, INC.-2019TRISPO00353

PATIENT

DRUGS (2)
  1. CLONLDINE [Concomitant]
     Indication: IMPULSIVE BEHAVIOUR
     Dosage: 5 DF, DAILY (ONE IN THE MORNING 2 AT LUNCH AND 2 AT BED TIME)
     Route: 065
     Dates: start: 2013
  2. QUILLIVANT XR [Suspect]
     Active Substance: METHYLPHENIDATE HYDROCHLORIDE
     Indication: ATTENTION DEFICIT/HYPERACTIVITY DISORDER
     Dosage: 4ML IN MORNING AND 4ML AT LUNCH
     Route: 065
     Dates: start: 2013

REACTIONS (5)
  - Liquid product physical issue [Unknown]
  - Inappropriate schedule of product administration [Unknown]
  - Drug ineffective [Unknown]
  - Condition aggravated [Unknown]
  - Mood swings [Unknown]

NARRATIVE: CASE EVENT DATE: 20190311
